FAERS Safety Report 6075787-5 (Version None)
Quarter: 2009Q1

REPORT INFORMATION
  Report Type: 
  Country: None (occurrence: None)
  Receive Date: 20090212
  Receipt Date: 20070927
  Transmission Date: 20090719
  Serious: No
  Sender: FDA-Public Use
  Company Number: FR-JNJFOC-20080800427

PATIENT
  Age: 18 Year
  Sex: Female

DRUGS (1)
  1. IXPRIM [Suspect]
     Indication: DRUG USE FOR UNKNOWN INDICATION
     Route: 048

REACTIONS (6)
  - CEREBELLAR SYNDROME [None]
  - CEREBRAL ATAXIA [None]
  - HYPOREFLEXIA [None]
  - MUSCLE CONTRACTIONS INVOLUNTARY [None]
  - PYREXIA [None]
  - VERTIGO [None]
